FAERS Safety Report 15283612 (Version 1)
Quarter: 2018Q3

REPORT INFORMATION
  Report Type: Spontaneous
  Country: US (occurrence: US)
  Receive Date: 20180816
  Receipt Date: 20180816
  Transmission Date: 20181010
  Serious: No
  Sender: FDA-Public Use
  Company Number: US-TEVA-2018-US-943549

PATIENT
  Sex: Female

DRUGS (1)
  1. WARFARIN [Suspect]
     Active Substance: WARFARIN
     Indication: COAGULOPATHY
     Route: 065
     Dates: start: 201807

REACTIONS (5)
  - Pruritus generalised [Unknown]
  - Dyspnoea [Unknown]
  - Hypersensitivity [Unknown]
  - Chest discomfort [Unknown]
  - Headache [Unknown]
